FAERS Safety Report 7593923-6 (Version None)
Quarter: 2011Q3

REPORT INFORMATION
  Report Type: 
  Country: None (occurrence: None)
  Receive Date: 20110706
  Receipt Date: 20110512
  Transmission Date: 20111222
  Serious: Yes (Other)
  Sender: FDA-Public Use
  Company Number: GR-UCBSA-033940

PATIENT
  Age: 25 Year
  Sex: Male

DRUGS (3)
  1. KEPPRA [Suspect]
     Indication: EPILEPSY
     Route: 042
  2. VIMPAT [Concomitant]
     Indication: EPILEPSY
  3. TRILEPTAL [Concomitant]
     Indication: EPILEPSY

REACTIONS (1)
  - RENAL IMPAIRMENT [None]
